FAERS Safety Report 10185403 (Version 1)
Quarter: 2014Q2

REPORT INFORMATION
  Report Type: Report from Study
  Country: AU (occurrence: AU)
  Receive Date: 20140521
  Receipt Date: 20140521
  Transmission Date: 20141212
  Serious: Yes (Other)
  Sender: FDA-Public Use
  Company Number: PHHY2014AU059284

PATIENT
  Sex: Female

DRUGS (2)
  1. CLOZARIL [Suspect]
     Dosage: 500 MG
     Dates: start: 20071105, end: 20140324
  2. CLOZARIL [Suspect]
     Dosage: UNK

REACTIONS (1)
  - Psychotic disorder [Unknown]
